FAERS Safety Report 8456216-0 (Version None)
Quarter: 2012Q2

REPORT INFORMATION
  Report Type: 
  Country: None (occurrence: None)
  Receive Date: 20120621
  Receipt Date: 20120613
  Transmission Date: 20120825
  Serious: Yes (Death)
  Sender: FDA-Public Use
  Company Number: US-ROCHE-1074719

PATIENT
  Sex: Male

DRUGS (10)
  1. LYRICA [Concomitant]
  2. RITUXAN [Suspect]
     Indication: CHRONIC LYMPHOCYTIC LEUKAEMIA
     Route: 042
     Dates: start: 20111102
  3. AMLODIPINE [Concomitant]
  4. ONGLYZA [Concomitant]
  5. ECOTRIN EXTRA STRENGTH [Concomitant]
  6. ALLOPURINOL [Concomitant]
  7. FINASTERIDE [Concomitant]
  8. SIMVASTATIN [Concomitant]
  9. RITUXAN [Suspect]
     Indication: LYMPHOCYTIC LYMPHOMA
  10. TRAMADOL HCL [Concomitant]

REACTIONS (1)
  - MYOCARDIAL INFARCTION [None]
